FAERS Safety Report 25397585 (Version 1)
Quarter: 2025Q2

REPORT INFORMATION
  Report Type: Spontaneous
  Country: US (occurrence: US)
  Receive Date: 20250604
  Receipt Date: 20250604
  Transmission Date: 20250716
  Serious: No
  Sender: GALPHARM INTERNATIONAL
  Company Number: US-PERRIGO-24US008373

PATIENT
  Age: 53 Year
  Sex: Male
  Weight: 87.982 kg

DRUGS (4)
  1. MINOXIDIL [Suspect]
     Active Substance: MINOXIDIL
     Indication: Alopecia
     Route: 061
     Dates: start: 202404, end: 20240821
  2. MINOXIDIL [Suspect]
     Active Substance: MINOXIDIL
     Route: 061
     Dates: start: 20240822, end: 20240829
  3. METFORMIN [Concomitant]
     Active Substance: METFORMIN HYDROCHLORIDE
     Indication: Diabetes mellitus
     Route: 065
  4. LOVASTATIN [Concomitant]
     Active Substance: LOVASTATIN
     Indication: Blood cholesterol increased
     Route: 065

REACTIONS (7)
  - Dandruff [Not Recovered/Not Resolved]
  - Application site pruritus [Recovered/Resolved]
  - Application site pain [Recovered/Resolved]
  - Application site erythema [Recovered/Resolved]
  - Application site pain [Recovered/Resolved]
  - Inappropriate schedule of product administration [Unknown]
  - Incorrect dose administered [Unknown]

NARRATIVE: CASE EVENT DATE: 20240401
